FAERS Safety Report 9912771 (Version 2)
Quarter: 2014Q2

REPORT INFORMATION
  Report Type: Spontaneous
  Country: US (occurrence: US)
  Receive Date: 20140220
  Receipt Date: 20140424
  Transmission Date: 20141212
  Serious: Yes (Other)
  Sender: FDA-Public Use
  Company Number: US-PFIZER INC-2014043459

PATIENT
  Age: 38 Year
  Sex: Female

DRUGS (1)
  1. SUTENT [Suspect]
     Dosage: 50 MG, ONCE DAILY, 28 DAYS ON AND 14 DAYS OFF
     Route: 048
     Dates: start: 20140118

REACTIONS (9)
  - Dysgeusia [Unknown]
  - Rash macular [Unknown]
  - Blood pressure increased [Unknown]
  - Diarrhoea [Unknown]
  - Nausea [Unknown]
  - Decreased appetite [Unknown]
  - Abdominal pain upper [Unknown]
  - Stomatitis [Unknown]
  - Pain in extremity [Unknown]
